FAERS Safety Report 5474574-6 (Version None)
Quarter: 2007Q3

REPORT INFORMATION
  Report Type: 
  Country: None (occurrence: None)
  Receive Date: 20070831
  Receipt Date: 20070426
  Transmission Date: 20080115
  Serious: No
  Sender: FDA-Public Use
  Company Number: 240558

PATIENT
  Sex: Female

DRUGS (2)
  1. LUCENTIS [Suspect]
     Indication: DRUG USE FOR UNKNOWN INDICATION
     Dosage: 1/MONTH
     Dates: start: 20061201
  2. VITAMINS (VITAMINS NOS) [Concomitant]

REACTIONS (1)
  - VISUAL ACUITY REDUCED [None]
